FAERS Safety Report 4813876-0 (Version None)
Quarter: 2005Q4

REPORT INFORMATION
  Report Type: 
  Country: None (occurrence: None)
  Receive Date: 20051028
  Receipt Date: 20050331
  Transmission Date: 20060501
  Serious: No
  Sender: FDA-Public Use
  Company Number: US-GLAXOSMITHKLINE-A0552122A

PATIENT
  Age: 33 Year
  Sex: Male

DRUGS (8)
  1. ADVAIR DISKUS 100/50 [Suspect]
     Indication: ASTHMA
     Dosage: 1PUFF TWICE PER DAY
     Route: 055
     Dates: start: 19990401
  2. DOXYCICLINE [Concomitant]
  3. SINGULAIR [Concomitant]
  4. VENTOLIN [Concomitant]
  5. ALBUTEROL SULFATE [Concomitant]
  6. FOSAMAX [Concomitant]
  7. RETIN-A [Concomitant]
  8. PREDNISONE [Concomitant]
     Dates: start: 19800101

REACTIONS (2)
  - BONE DENSITY DECREASED [None]
  - THERAPEUTIC RESPONSE UNEXPECTED [None]
